FAERS Safety Report 9062040 (Version 1)
Quarter: 2013Q1

REPORT INFORMATION
  Report Type: Spontaneous
  Country: US (occurrence: US)
  Receive Date: 20130128
  Receipt Date: 20130128
  Transmission Date: 20140127
  Serious: No
  Sender: FDA-Public Use
  Company Number: US-TEVA-380814USA

PATIENT
  Sex: Female
  Weight: 47.22 kg

DRUGS (6)
  1. QVAR [Suspect]
     Indication: ASTHMA
     Dosage: 40 MICROGRAM DAILY;
     Route: 055
     Dates: start: 20130101
  2. VENTOLIN [Concomitant]
     Indication: ASTHMA
     Dosage: PRN
     Route: 055
     Dates: start: 20130101
  3. WARFARIN [Concomitant]
     Indication: THROMBOSIS PROPHYLAXIS
     Dosage: 3 MILLIGRAM DAILY;
     Route: 048
  4. FUROSEMIDE [Concomitant]
     Indication: DIURETIC THERAPY
     Dosage: 17.1429 MILLIGRAM DAILY;
     Route: 048
  5. POTASSIUM CHLORIDE [Concomitant]
     Indication: SUPPLEMENTATION THERAPY
     Route: 048
  6. DIGOXIN [Concomitant]
     Indication: CARDIAC FAILURE CONGESTIVE
     Dosage: .25 MILLIGRAM DAILY;
     Route: 048

REACTIONS (3)
  - Aphonia [Not Recovered/Not Resolved]
  - Condition aggravated [Not Recovered/Not Resolved]
  - Expired drug administered [Unknown]
